FAERS Safety Report 6901797-9 (Version None)
Quarter: 2010Q3

REPORT INFORMATION
  Report Type: 
  Country: None (occurrence: None)
  Receive Date: 20100803
  Receipt Date: 20080320
  Transmission Date: 20110219
  Serious: Yes (Other)
  Sender: FDA-Public Use
  Company Number: US-PFIZER INC-2008026214

PATIENT
  Sex: Female
  Weight: 59.09 kg

DRUGS (8)
  1. LYRICA [Suspect]
     Indication: NECK INJURY
     Route: 048
     Dates: start: 20071201, end: 20080317
  2. LYRICA [Suspect]
     Indication: JOINT INJURY
  3. LYRICA [Suspect]
  4. LYRICA [Suspect]
  5. XANAX [Concomitant]
  6. HYDROCODONE BITARTRATE [Concomitant]
  7. OXYCODONE [Concomitant]
  8. SOMA [Concomitant]

REACTIONS (6)
  - BREAKTHROUGH PAIN [None]
  - DYSKINESIA [None]
  - HUNGER [None]
  - RASH [None]
  - RECTAL HAEMORRHAGE [None]
  - WEIGHT INCREASED [None]
